FAERS Safety Report 7353901-9 (Version None)
Quarter: 2011Q1

REPORT INFORMATION
  Report Type: 
  Country: None (occurrence: None)
  Receive Date: 20110315
  Receipt Date: 20100422
  Transmission Date: 20110831
  Serious: Yes (Hospitalization)
  Sender: FDA-Public Use
  Company Number: GXKR2010GB04568

PATIENT
  Age: 53 Year
  Sex: Female

DRUGS (1)
  1. OMEPRAZOLE [Suspect]
     Indication: GASTROOESOPHAGEAL REFLUX DISEASE
     Dosage: UNK

REACTIONS (5)
  - HYPOMAGNESAEMIA [None]
  - HYPOCALCAEMIA [None]
  - MUSCLE SPASMS [None]
  - CHRONIC OBSTRUCTIVE PULMONARY DISEASE [None]
  - PARAESTHESIA [None]
